FAERS Safety Report 7129482-1 (Version None)
Quarter: 2010Q4

REPORT INFORMATION
  Report Type: 
  Country: None (occurrence: None)
  Receive Date: 20101116
  Receipt Date: 20101108
  Transmission Date: 20110411
  Serious: Yes (Other)
  Sender: FDA-Public Use
  Company Number: 021672

PATIENT
  Age: 82 Year
  Sex: Male

DRUGS (1)
  1. ZAROXOLYN [Suspect]

REACTIONS (1)
  - DEHYDRATION [None]
